FAERS Safety Report 16630953 (Version 1)
Quarter: 2019Q3

REPORT INFORMATION
  Report Type: Spontaneous
  Country: BR (occurrence: BR)
  Receive Date: 20190725
  Receipt Date: 20190725
  Transmission Date: 20191004
  Serious: Yes (Other)
  Sender: FDA-Public Use
  Company Number: PHHY2019BR171725

PATIENT
  Sex: Female

DRUGS (1)
  1. TASIGNA [Suspect]
     Active Substance: NILOTINIB
     Indication: PRODUCT USED FOR UNKNOWN INDICATION
     Dosage: UNK
     Route: 065

REACTIONS (9)
  - Mobility decreased [Unknown]
  - Chronic myeloid leukaemia [Unknown]
  - Haemorrhage [Unknown]
  - Gait inability [Unknown]
  - Rectal cancer [Unknown]
  - Aphasia [Unknown]
  - Skin cancer [Unknown]
  - Pericardial effusion [Unknown]
  - Cardiac disorder [Unknown]
